FAERS Safety Report 4597682-0 (Version None)
Quarter: 2005Q1

REPORT INFORMATION
  Report Type: 
  Country: None (occurrence: None)
  Receive Date: 20050303
  Receipt Date: 20050225
  Transmission Date: 20050727
  Serious: Yes (Hospitalization)
  Sender: FDA-Public Use
  Company Number: PHBS2005NO02898

PATIENT
  Age: 18 Year
  Sex: Female

DRUGS (1)
  1. VOLTAREN [Suspect]
     Indication: JOINT SPRAIN
     Dosage: 250 MG IN 3 DAYS
     Route: 048

REACTIONS (10)
  - BLOOD CREATINE PHOSPHOKINASE INCREASED [None]
  - BLOOD CREATININE INCREASED [None]
  - DIZZINESS [None]
  - FEELING ABNORMAL [None]
  - HEADACHE [None]
  - NAUSEA [None]
  - SYNCOPE [None]
  - THROMBOCYTOPENIA [None]
  - VERTIGO [None]
  - VOMITING [None]
